FAERS Safety Report 22882182 (Version 3)
Quarter: 2023Q4

REPORT INFORMATION
  Report Type: Spontaneous
  Country: US (occurrence: US)
  Receive Date: 20230830
  Receipt Date: 20231120
  Transmission Date: 20240110
  Serious: Yes (Hospitalization)
  Sender: FDA-Public Use
  Company Number: US-PFIZER INC-PV202300146742

PATIENT
  Age: 90 Year
  Sex: Male
  Weight: 90.703 kg

DRUGS (5)
  1. PRAVASTATIN [Suspect]
     Active Substance: PRAVASTATIN
     Indication: Blood cholesterol abnormal
     Dosage: 40 MG, 1X/DAY
  2. FINASTERIDE [Suspect]
     Active Substance: FINASTERIDE
     Dosage: 1X/DAY
  3. JARDIANCE [Suspect]
     Active Substance: EMPAGLIFLOZIN
     Dosage: 1 DAILY
  4. CETIRIZINE HYDROCHLORIDE [Concomitant]
     Active Substance: CETIRIZINE HYDROCHLORIDE
     Dosage: UNK
  5. UMECLIDINIUM BROMIDE\VILANTEROL TRIFENATATE [Concomitant]
     Active Substance: UMECLIDINIUM BROMIDE\VILANTEROL TRIFENATATE
     Dosage: ONE PRN (AS NEEDED) 2X PER WEEK

REACTIONS (1)
  - No adverse event [Not Recovered/Not Resolved]

NARRATIVE: CASE EVENT DATE: 20200101
